FAERS Safety Report 9785924 (Version 1)
Quarter: 2013Q4

REPORT INFORMATION
  Report Type: Report from Study
  Country: DZ (occurrence: DZ)
  Receive Date: 20131227
  Receipt Date: 20131227
  Transmission Date: 20140711
  Serious: Yes (Death)
  Sender: FDA-Public Use
  Company Number: DZ-SA-2013SA134874

PATIENT
  Age: 41 Year
  Sex: Female
  Weight: 79 kg

DRUGS (6)
  1. DOCETAXEL [Suspect]
     Indication: BREAST CANCER
     Route: 042
     Dates: start: 20090801, end: 20090801
  2. DOCETAXEL [Suspect]
     Indication: BREAST CANCER
     Route: 042
     Dates: start: 20090913, end: 20090913
  3. ONDANSETRON [Concomitant]
     Indication: PROPHYLAXIS OF NAUSEA AND VOMITING
     Route: 042
     Dates: start: 20090913, end: 20090913
  4. RANITIDINE [Concomitant]
     Indication: GASTRIC ULCER
     Route: 042
     Dates: start: 20090913, end: 20090913
  5. METHYLPREDNISOLONE [Concomitant]
     Indication: PROPHYLAXIS OF NAUSEA AND VOMITING
     Route: 042
     Dates: start: 20090913, end: 20090913
  6. CORTICOSTEROIDS [Concomitant]
     Indication: PROPHYLAXIS OF NAUSEA AND VOMITING
     Route: 048
     Dates: start: 20090912, end: 20090914

REACTIONS (1)
  - Myocardial infarction [Fatal]
